FAERS Safety Report 6638502-X (Version None)
Quarter: 2010Q1

REPORT INFORMATION
  Report Type: 
  Country: None (occurrence: None)
  Receive Date: 20100317
  Receipt Date: 20100310
  Transmission Date: 20100710
  Serious: Yes (Hospitalization, Other)
  Sender: FDA-Public Use
  Company Number: US-BRISTOL-MYERS SQUIBB COMPANY-14865497

PATIENT
  Age: 64 Year
  Sex: Female
  Weight: 54 kg

DRUGS (4)
  1. ORENCIA [Suspect]
     Indication: RHEUMATOID ARTHRITIS
     Dosage: STOPPED FOR 2 MONTHS AND RESTARTED AGAIN. RECEIVED 3 INFUSIONS SINCE THERAPY WAS RESTARTED.
  2. PREDNISONE [Concomitant]
  3. VITAMINS [Concomitant]
  4. HYDROCODONE [Concomitant]
     Dosage: 1 DF - 1-2TABS

REACTIONS (3)
  - NEOPLASM [None]
  - SINUSITIS [None]
  - VISUAL IMPAIRMENT [None]
